FAERS Safety Report 5283467-9 (Version None)
Quarter: 2007Q2

REPORT INFORMATION
  Report Type: 
  Country: None (occurrence: None)
  Receive Date: 20070402
  Receipt Date: 20070323
  Transmission Date: 20071010
  Serious: Yes (Death, Hospitalization, Other)
  Sender: FDA-Public Use
  Company Number: DE-MERCK-0703DEU00109

PATIENT
  Age: 37 Year
  Sex: Male

DRUGS (4)
  1. CRIXIVAN [Suspect]
     Indication: ACUTE HIV INFECTION
     Route: 048
     Dates: start: 20020201
  2. LOPINAVIR [Suspect]
     Route: 065
     Dates: start: 20020201
  3. LAMIVUDINE [Suspect]
     Route: 065
     Dates: start: 20020201
  4. TENOFOVIR [Suspect]
     Route: 065
     Dates: start: 20020201

REACTIONS (3)
  - ANGIOCENTRIC LYMPHOMA [None]
  - EPSTEIN-BARR VIRUS INFECTION [None]
  - IMMUNE RECONSTITUTION SYNDROME [None]
